FAERS Safety Report 12976671 (Version 2)
Quarter: 2016Q4

REPORT INFORMATION
  Report Type: Spontaneous
  Country: BG (occurrence: BG)
  Receive Date: 20161127
  Receipt Date: 20161207
  Transmission Date: 20170207
  Serious: Yes (Death, Hospitalization)
  Sender: FDA-Public Use
  Company Number: BG-ROCHE-1858220

PATIENT
  Age: 62 Year
  Sex: Female

DRUGS (4)
  1. MEDROL [Concomitant]
     Active Substance: METHYLPREDNISOLONE
     Indication: RHEUMATOID ARTHRITIS
     Dosage: MEDROL TABL. 2 X 1 TABL. DAILY
     Route: 065
     Dates: start: 2010
  2. ROACTEMRA [Suspect]
     Active Substance: TOCILIZUMAB
     Indication: RHEUMATOID ARTHRITIS
     Dosage: ROACTEMRA FL. 162 MG S.C. ONCE WEEKLY
     Route: 058
     Dates: start: 201603
  3. TERTENSIF [Concomitant]
     Active Substance: INDAPAMIDE
     Indication: HYPERTENSION
     Route: 048
  4. ENALAPRIL [Concomitant]
     Active Substance: ENALAPRIL
     Indication: HYPERTENSION
     Route: 048

REACTIONS (3)
  - Abdominal pain upper [Fatal]
  - Haematemesis [Fatal]
  - Faeces discoloured [Fatal]

NARRATIVE: CASE EVENT DATE: 20161108
